FAERS Safety Report 4708043-5 (Version None)
Quarter: 2005Q2

REPORT INFORMATION
  Report Type: 
  Country: None (occurrence: None)
  Receive Date: 20050629
  Receipt Date: 20050509
  Transmission Date: 20051028
  Serious: No
  Sender: FDA-Public Use
  Company Number: 05P-163-0300086-00

PATIENT
  Age: 55 Year
  Sex: Female

DRUGS (11)
  1. HUMIRA [Suspect]
     Indication: RHEUMATOID ARTHRITIS
     Dosage: 40 MG, 1 IN 2 WK, SUBCUTANEOUS
     Route: 058
     Dates: start: 20040501
  2. DICLOFENAC SODIUM [Concomitant]
  3. TRAMEBEL [Concomitant]
  4. ESCITALOPRAM(ESCITALOPRAM) (ESCITALOPRAM) [Concomitant]
  5. ATENOLOL [Concomitant]
  6. HYDROCHLORATHIAZIDE [Concomitant]
  7. RANITIDINE [Concomitant]
  8. VITAMINS [Concomitant]
  9. CALCIUM GLUCONATE [Concomitant]
  10. ASPIRIN [Concomitant]
  11. ALPRAZOLAM [Concomitant]

REACTIONS (4)
  - FATIGUE [None]
  - FLAT AFFECT [None]
  - LIVER FUNCTION TEST ABNORMAL [None]
  - PAIN [None]
